FAERS Safety Report 7531999-2 (Version None)
Quarter: 2011Q2

REPORT INFORMATION
  Report Type: 
  Country: None (occurrence: None)
  Receive Date: 20110608
  Receipt Date: 20110525
  Transmission Date: 20111010
  Serious: Yes (Life-Threatening, Hospitalization)
  Sender: FDA-Public Use
  Company Number: DE-ROCHE-780538

PATIENT
  Sex: Male
  Weight: 74 kg

DRUGS (8)
  1. PEGINTERFERON ALFA-2A [Suspect]
     Indication: HEPATITIS C
     Route: 058
     Dates: start: 20101122, end: 20110328
  2. ALLOPURINOL [Concomitant]
     Dosage: TAKEN FOR MANY YEARS
     Route: 048
  3. RAMIPRIL [Concomitant]
     Dosage: TAKEN FOR MANY YEARS
     Route: 048
  4. METOPROLOL TARTRATE [Concomitant]
     Dosage: TAKEN FOR MANY YEARS
     Route: 048
  5. RIBAVIRIN [Suspect]
     Dosage: REDUCED FROM 1200 MG TO 800 MG TO 400 AND FINALLY TO 200 MG.
     Route: 048
     Dates: end: 20110328
  6. CARMEN [Concomitant]
     Dosage: TAKEN FOR MANY YEARS
     Route: 048
  7. TORSEMIDE [Concomitant]
     Dosage: TAKEN FOR MANY YEARS
     Route: 048
  8. RIBAVIRIN [Suspect]
     Indication: HEPATITIS C
     Route: 048
     Dates: start: 20101122, end: 20110101

REACTIONS (8)
  - NEUTROPENIC SEPSIS [None]
  - ANAEMIA [None]
  - TRACHEOBRONCHITIS [None]
  - SYSTEMIC INFLAMMATORY RESPONSE SYNDROME [None]
  - RENAL FAILURE ACUTE [None]
  - PANCYTOPENIA [None]
  - PNEUMONIA PRIMARY ATYPICAL [None]
  - DIABETES MELLITUS [None]
